FAERS Safety Report 5624788-7 (Version None)
Quarter: 2008Q1

REPORT INFORMATION
  Report Type: 
  Country: None (occurrence: None)
  Receive Date: 20080213
  Receipt Date: 20071109
  Transmission Date: 20080703
  Serious: No
  Sender: FDA-Public Use
  Company Number: US-BAYER-200712803BWH

PATIENT
  Sex: Female
  Weight: 50 kg

DRUGS (5)
  1. AVELOX [Suspect]
     Indication: SINUSITIS
     Dosage: UNIT DOSE: 400 MG
     Route: 048
     Dates: start: 20070816
  2. BIO ESTROGEN [Concomitant]
  3. CALCIUM GLUCONATE [Concomitant]
  4. CLARITIN [Concomitant]
  5. QUERCETIN [Concomitant]
     Route: 048

REACTIONS (3)
  - MUSCLE CONTRACTURE [None]
  - MUSCLE TWITCHING [None]
  - PARAESTHESIA [None]
